FAERS Safety Report 19172845 (Version 6)
Quarter: 2021Q2

REPORT INFORMATION
  Report Type: Report from Study
  Country: JP (occurrence: JP)
  Receive Date: 20210423
  Receipt Date: 20210617
  Transmission Date: 20210717
  Serious: Yes (Hospitalization)
  Sender: FDA-Public Use
  Company Number: JP-ROCHE-2810890

PATIENT
  Age: 57 Year
  Sex: Male
  Weight: 72.3 kg

DRUGS (22)
  1. CORTRIL [Concomitant]
     Active Substance: HYDROCORTISONE
     Route: 048
     Dates: start: 20210414, end: 20210426
  2. FLUTICASONE. [Concomitant]
     Active Substance: FLUTICASONE
     Indication: SEASONAL ALLERGY
     Dosage: 1 SPRAY
     Route: 045
     Dates: start: 20210213, end: 20210411
  3. SENNOSIDE [Concomitant]
     Active Substance: SENNOSIDES
     Indication: CONSTIPATION
     Route: 048
     Dates: start: 20210420, end: 20210420
  4. MAGMITT [Concomitant]
     Active Substance: MAGNESIUM OXIDE
     Indication: CONSTIPATION
     Route: 048
     Dates: start: 20210421, end: 20210425
  5. EVE A [Concomitant]
     Active Substance: APRONALIDE\CAFFEINE\IBUPROFEN
     Indication: PERIODONTAL DISEASE
     Dosage: 2 TABLET
     Route: 048
  6. ACETAMINOPHEN. [Concomitant]
     Active Substance: ACETAMINOPHEN
     Route: 048
     Dates: start: 20210420, end: 20210422
  7. THYRADIN?S [Concomitant]
     Active Substance: LEVOTHYROXINE
     Indication: HYPOTHYROIDISM
     Route: 048
     Dates: start: 20191002, end: 20210416
  8. FEXOFENADINE HYDROCHLORIDE. [Concomitant]
     Active Substance: FEXOFENADINE HYDROCHLORIDE
     Indication: SEASONAL ALLERGY
     Route: 048
     Dates: start: 20210211, end: 20210328
  9. ACETAMINOPHEN. [Concomitant]
     Active Substance: ACETAMINOPHEN
     Indication: STOMATITIS
     Route: 048
     Dates: start: 20210415, end: 20210419
  10. AZUNOL GARGLE LIQUID [Concomitant]
     Active Substance: SODIUM GUALENATE MONOHYDRATE
     Indication: PROPHYLAXIS
     Route: 048
     Dates: start: 20210501, end: 20210603
  11. CABOZANTINIB [Suspect]
     Active Substance: CABOZANTINIB
     Indication: RENAL CELL CARCINOMA
     Dosage: THREE 20 MG TABLETS?ON 02/APR/2021, HE RECEIVED MOST RECENT DOSE OF CABOZANTINIB (60 MG) PRIOR TO ON
     Route: 048
     Dates: start: 20210331
  12. MAGNESIUM OXIDE. [Concomitant]
     Active Substance: MAGNESIUM OXIDE
     Indication: CONSTIPATION
     Dosage: 2 TABLET
     Route: 048
     Dates: start: 20200229
  13. AZUNOL [Concomitant]
     Indication: STOMATITIS
     Route: 061
     Dates: start: 20210419, end: 20210421
  14. AZUNOL GARGLE LIQUID [Concomitant]
     Active Substance: SODIUM GUALENATE MONOHYDRATE
     Indication: STOMATITIS
     Route: 048
     Dates: start: 20210415, end: 20210430
  15. ATEZOLIZUMAB. [Suspect]
     Active Substance: ATEZOLIZUMAB
     Indication: RENAL CELL CARCINOMA
     Dosage: ON DAY 1 OF EACH 21?DAY CYCLE.?ON 31/MAR/2021, HE RECEIVED THE MOST RECENT DOSE OF ATEZOLIZUMAB (120
     Route: 041
     Dates: start: 20210331
  16. CORTRIL [Concomitant]
     Active Substance: HYDROCORTISONE
     Indication: ADRENAL INSUFFICIENCY
     Route: 048
     Dates: start: 20191127, end: 20210413
  17. CORTRIL [Concomitant]
     Active Substance: HYDROCORTISONE
     Route: 048
     Dates: start: 20210427
  18. BROTIZOLAM [Concomitant]
     Active Substance: BROTIZOLAM
     Indication: INSOMNIA
     Route: 048
  19. DEXAMETHASONE. [Concomitant]
     Active Substance: DEXAMETHASONE
     Indication: STOMATITIS
     Dosage: PRN
     Route: 061
     Dates: start: 20210415, end: 20210417
  20. THYRADIN?S [Concomitant]
     Active Substance: LEVOTHYROXINE
     Route: 048
     Dates: start: 20210418
  21. THYRADIN?S [Concomitant]
     Active Substance: LEVOTHYROXINE
     Route: 048
     Dates: start: 20210417, end: 20210417
  22. LEVOCABASTINE [Concomitant]
     Active Substance: LEVOCABASTINE
     Indication: SEASONAL ALLERGY
     Route: 047
     Dates: start: 20210213, end: 20210411

REACTIONS (7)
  - White blood cell count decreased [Recovered/Resolved]
  - Pyrexia [Recovered/Resolved]
  - Aspartate aminotransferase increased [Recovered/Resolved]
  - Malaise [Recovered/Resolved]
  - Platelet count decreased [Recovered/Resolved]
  - Fibrin D dimer increased [Recovered/Resolved]
  - Alanine aminotransferase increased [Recovered/Resolved]

NARRATIVE: CASE EVENT DATE: 20210403
